FAERS Safety Report 24323039 (Version 1)
Quarter: 2024Q3

REPORT INFORMATION
  Report Type: Spontaneous
  Country: US (occurrence: US)
  Receive Date: 20240916
  Receipt Date: 20240916
  Transmission Date: 20241017
  Serious: No
  Sender: SANOFI AVENTIS
  Company Number: US-SA-2024SA266198

PATIENT
  Age: 30 Year
  Sex: Male

DRUGS (6)
  1. DUPIXENT [Suspect]
     Active Substance: DUPILUMAB
     Indication: Dermatitis atopic
     Dosage: 300 MG, QOW
     Route: 058
     Dates: start: 20240426
  2. DESONIDE [Concomitant]
     Active Substance: DESONIDE
  3. ENBREL [Concomitant]
     Active Substance: ETANERCEPT
  4. FLUOROURACIL [Concomitant]
     Active Substance: FLUOROURACIL
  5. MOMETASONE [Concomitant]
     Active Substance: MOMETASONE
  6. PREDNISONE [Concomitant]
     Active Substance: PREDNISONE

REACTIONS (2)
  - Therapeutic response decreased [Unknown]
  - Product dose omission in error [Unknown]

NARRATIVE: CASE EVENT DATE: 20240101
